FAERS Safety Report 8924297 (Version 1)
Quarter: 2012Q4

REPORT INFORMATION
  Report Type: 
  Country: US (occurrence: US)
  Receive Date: 20121126
  Receipt Date: 20121126
  Transmission Date: 20130627
  Serious: Yes (Hospitalization)
  Sender: FDA-Public Use
  Company Number: US-ROXANE LABORATORIES, INC.-2012-RO-02436RO

PATIENT
  Sex: Female

DRUGS (2)
  1. PREDNISONE [Suspect]
     Indication: MULTIPLE SCLEROSIS RELAPSE
     Route: 048
  2. COPAXONE [Suspect]
     Indication: MULTIPLE SCLEROSIS
     Dosage: 20 mg
     Route: 058
     Dates: start: 20010101

REACTIONS (3)
  - Multiple sclerosis relapse [Unknown]
  - Blood glucose increased [Unknown]
  - Tremor [Unknown]
